FAERS Safety Report 9226119 (Version 2)
Quarter: 2013Q3

REPORT INFORMATION
  Report Type: Spontaneous
  Country: US (occurrence: US)
  Receive Date: 20130411
  Receipt Date: 20130702
  Transmission Date: 20140515
  Serious: No
  Sender: FDA-Public Use
  Company Number: US-009507513-1304USA005382

PATIENT
  Sex: Female

DRUGS (1)
  1. CLARITIN [Suspect]
     Indication: PRURITUS
     Dosage: 10 MG, UNKNOWN
     Route: 048
     Dates: start: 201303

REACTIONS (4)
  - Somnolence [Unknown]
  - Therapeutic product ineffective for unapproved indication [Unknown]
  - Overdose [Unknown]
  - Off label use [Unknown]
